FAERS Safety Report 10168692 (Version 1)
Quarter: 2014Q2

REPORT INFORMATION
  Report Type: Spontaneous
  Country: US (occurrence: None)
  Receive Date: 20140512
  Receipt Date: 20140512
  Transmission Date: 20141212
  Serious: Yes (Other)
  Sender: FDA-Public Use
  Company Number: None

PATIENT
  Age: 61 Year
  Sex: Male
  Weight: 71.22 kg

DRUGS (6)
  1. COLD + FLU RELIEF 30ML WALGREENS [Suspect]
     Indication: NASOPHARYNGITIS
     Route: 048
     Dates: start: 20140505, end: 20140507
  2. METOPROLOL [Concomitant]
  3. MONTELUKAST [Concomitant]
  4. PRAVASTATIN [Concomitant]
  5. TAMUSOLSIN [Concomitant]
  6. LEXAPRO [Concomitant]

REACTIONS (4)
  - Abnormal dreams [None]
  - Product quality issue [None]
  - Product substitution issue [None]
  - Product formulation issue [None]
